FAERS Safety Report 25587600 (Version 2)
Quarter: 2025Q3

REPORT INFORMATION
  Report Type: Spontaneous
  Country: EU (occurrence: EU)
  Receive Date: 20250721
  Receipt Date: 20250729
  Transmission Date: 20251020
  Serious: Yes (Congenital Anomaly)
  Sender: MYLAN
  Company Number: EU-EMB-M202403138-1

PATIENT
  Sex: Male
  Weight: 2.62 kg

DRUGS (48)
  1. SERTRALINE [Suspect]
     Active Substance: SERTRALINE HYDROCHLORIDE
     Indication: Product used for unknown indication
     Dosage: 50 MILLIGRAM, QD
     Dates: start: 202309, end: 202406
  2. SERTRALINE [Suspect]
     Active Substance: SERTRALINE HYDROCHLORIDE
     Dosage: 50 MILLIGRAM, QD
     Dates: start: 202309, end: 202406
  3. SERTRALINE [Suspect]
     Active Substance: SERTRALINE HYDROCHLORIDE
     Dosage: 50 MILLIGRAM, QD
     Route: 064
     Dates: start: 202309, end: 202406
  4. SERTRALINE [Suspect]
     Active Substance: SERTRALINE HYDROCHLORIDE
     Dosage: 50 MILLIGRAM, QD
     Route: 064
     Dates: start: 202309, end: 202406
  5. SERTRALINE [Suspect]
     Active Substance: SERTRALINE HYDROCHLORIDE
     Dosage: 50 MILLIGRAM, QD
     Dates: start: 202309, end: 202406
  6. SERTRALINE [Suspect]
     Active Substance: SERTRALINE HYDROCHLORIDE
     Dosage: 50 MILLIGRAM, QD
     Dates: start: 202309, end: 202406
  7. SERTRALINE [Suspect]
     Active Substance: SERTRALINE HYDROCHLORIDE
     Dosage: 50 MILLIGRAM, QD
     Route: 064
     Dates: start: 202309, end: 202406
  8. SERTRALINE [Suspect]
     Active Substance: SERTRALINE HYDROCHLORIDE
     Dosage: 50 MILLIGRAM, QD
     Route: 064
     Dates: start: 202309, end: 202406
  9. Pinimenthol [Concomitant]
     Indication: Product used for unknown indication
  10. Pinimenthol [Concomitant]
  11. Pinimenthol [Concomitant]
     Route: 064
  12. Pinimenthol [Concomitant]
     Route: 064
  13. Pinimenthol [Concomitant]
  14. Pinimenthol [Concomitant]
  15. Pinimenthol [Concomitant]
     Route: 064
  16. Pinimenthol [Concomitant]
     Route: 064
  17. Sidroga husten und bronchialtee [Concomitant]
     Indication: Product used for unknown indication
  18. Sidroga husten und bronchialtee [Concomitant]
  19. Sidroga husten und bronchialtee [Concomitant]
     Route: 064
  20. Sidroga husten und bronchialtee [Concomitant]
     Route: 064
  21. Sidroga husten und bronchialtee [Concomitant]
  22. Sidroga husten und bronchialtee [Concomitant]
  23. Sidroga husten und bronchialtee [Concomitant]
     Route: 064
  24. Sidroga husten und bronchialtee [Concomitant]
     Route: 064
  25. XYLOMETAZOLINE [Concomitant]
     Active Substance: XYLOMETAZOLINE
     Indication: Product used for unknown indication
     Dosage: 1-3 X DAILY 1 PUMP, QD
     Dates: start: 202403, end: 202406
  26. XYLOMETAZOLINE [Concomitant]
     Active Substance: XYLOMETAZOLINE
     Dosage: 1-3 X DAILY 1 PUMP, QD
     Dates: start: 202403, end: 202406
  27. XYLOMETAZOLINE [Concomitant]
     Active Substance: XYLOMETAZOLINE
     Dosage: 1-3 X DAILY 1 PUMP, QD
     Route: 064
     Dates: start: 202403, end: 202406
  28. XYLOMETAZOLINE [Concomitant]
     Active Substance: XYLOMETAZOLINE
     Dosage: 1-3 X DAILY 1 PUMP, QD
     Route: 064
     Dates: start: 202403, end: 202406
  29. XYLOMETAZOLINE [Concomitant]
     Active Substance: XYLOMETAZOLINE
     Dosage: 1-3 X DAILY 1 PUMP, QD
     Dates: start: 202403, end: 202406
  30. XYLOMETAZOLINE [Concomitant]
     Active Substance: XYLOMETAZOLINE
     Dosage: 1-3 X DAILY 1 PUMP, QD
     Dates: start: 202403, end: 202406
  31. XYLOMETAZOLINE [Concomitant]
     Active Substance: XYLOMETAZOLINE
     Dosage: 1-3 X DAILY 1 PUMP, QD
     Route: 064
     Dates: start: 202403, end: 202406
  32. XYLOMETAZOLINE [Concomitant]
     Active Substance: XYLOMETAZOLINE
     Dosage: 1-3 X DAILY 1 PUMP, QD
     Route: 064
     Dates: start: 202403, end: 202406
  33. METHYLDOPA [Concomitant]
     Active Substance: METHYLDOPA
     Indication: Product used for unknown indication
  34. METHYLDOPA [Concomitant]
     Active Substance: METHYLDOPA
  35. METHYLDOPA [Concomitant]
     Active Substance: METHYLDOPA
     Route: 064
  36. METHYLDOPA [Concomitant]
     Active Substance: METHYLDOPA
     Route: 064
  37. METHYLDOPA [Concomitant]
     Active Substance: METHYLDOPA
  38. METHYLDOPA [Concomitant]
     Active Substance: METHYLDOPA
  39. METHYLDOPA [Concomitant]
     Active Substance: METHYLDOPA
     Route: 064
  40. METHYLDOPA [Concomitant]
     Active Substance: METHYLDOPA
     Route: 064
  41. LEVOTHYROXINE SODIUM\POTASSIUM IODIDE [Concomitant]
     Active Substance: LEVOTHYROXINE SODIUM\POTASSIUM IODIDE
     Indication: Product used for unknown indication
     Dates: start: 202309, end: 202406
  42. LEVOTHYROXINE SODIUM\POTASSIUM IODIDE [Concomitant]
     Active Substance: LEVOTHYROXINE SODIUM\POTASSIUM IODIDE
     Dates: start: 202309, end: 202406
  43. LEVOTHYROXINE SODIUM\POTASSIUM IODIDE [Concomitant]
     Active Substance: LEVOTHYROXINE SODIUM\POTASSIUM IODIDE
     Route: 064
     Dates: start: 202309, end: 202406
  44. LEVOTHYROXINE SODIUM\POTASSIUM IODIDE [Concomitant]
     Active Substance: LEVOTHYROXINE SODIUM\POTASSIUM IODIDE
     Route: 064
     Dates: start: 202309, end: 202406
  45. LEVOTHYROXINE SODIUM\POTASSIUM IODIDE [Concomitant]
     Active Substance: LEVOTHYROXINE SODIUM\POTASSIUM IODIDE
     Dates: start: 202309, end: 202406
  46. LEVOTHYROXINE SODIUM\POTASSIUM IODIDE [Concomitant]
     Active Substance: LEVOTHYROXINE SODIUM\POTASSIUM IODIDE
     Dates: start: 202309, end: 202406
  47. LEVOTHYROXINE SODIUM\POTASSIUM IODIDE [Concomitant]
     Active Substance: LEVOTHYROXINE SODIUM\POTASSIUM IODIDE
     Route: 064
     Dates: start: 202309, end: 202406
  48. LEVOTHYROXINE SODIUM\POTASSIUM IODIDE [Concomitant]
     Active Substance: LEVOTHYROXINE SODIUM\POTASSIUM IODIDE
     Route: 064
     Dates: start: 202309, end: 202406

REACTIONS (2)
  - Ventricular septal defect [Unknown]
  - Foetal exposure during pregnancy [Unknown]

NARRATIVE: CASE EVENT DATE: 20230901
